FAERS Safety Report 11940601 (Version 4)
Quarter: 2016Q2

REPORT INFORMATION
  Report Type: Spontaneous
  Country: JP (occurrence: JP)
  Receive Date: 20160122
  Receipt Date: 20160406
  Transmission Date: 20160815
  Serious: Yes (Death, Other)
  Sender: FDA-Public Use
  Company Number: JP-BAYER-2016-011192

PATIENT
  Age: 78 Year
  Sex: Male

DRUGS (13)
  1. ANTEBATE [Concomitant]
     Active Substance: BETAMETHASONE DIPROPIONATE
     Route: 061
  2. LOXONIN [Concomitant]
     Active Substance: LOXOPROFEN SODIUM
  3. LAXOBERON [Concomitant]
     Active Substance: SODIUM PICOSULFATE
     Route: 048
  4. HIRUDOID [Concomitant]
     Active Substance: GLYCOSAMINOGLYCANS
     Route: 061
  5. MAGNESIUM OXIDE. [Concomitant]
     Active Substance: MAGNESIUM OXIDE
     Route: 048
  6. OXYCONTIN [Concomitant]
     Active Substance: OXYCODONE HYDROCHLORIDE
     Dosage: UNK
     Route: 048
  7. NEXAVAR [Suspect]
     Active Substance: SORAFENIB
     Indication: FOLLICULAR THYROID CANCER
     Dosage: DAILY DOSE 400 MG
     Route: 048
     Dates: start: 20160112, end: 20160116
  8. CALCIUM AL [Concomitant]
     Route: 048
  9. CYMBALTA [Concomitant]
     Active Substance: DULOXETINE HYDROCHLORIDE
     Dosage: UNK
     Route: 048
  10. MUCOSTA [Concomitant]
     Active Substance: REBAMIPIDE
  11. MORPHINE [Concomitant]
     Active Substance: MORPHINE
  12. NOVAMIN [Concomitant]
     Active Substance: PROCHLORPERAZINE MALEATE
  13. OXINORM [OXYCODONE HYDROCHLORIDE] [Concomitant]
     Route: 048

REACTIONS (6)
  - Dyspnoea [Unknown]
  - Lymphangiosis carcinomatosa [Fatal]
  - Weight decreased [None]
  - Palmar-plantar erythrodysaesthesia syndrome [Unknown]
  - Metastases to lung [Unknown]
  - Decreased appetite [None]

NARRATIVE: CASE EVENT DATE: 20160113
